FAERS Safety Report 21143110 (Version 1)
Quarter: 2022Q3

REPORT INFORMATION
  Report Type: Spontaneous
  Country: US (occurrence: None)
  Receive Date: 20220727
  Receipt Date: 20220727
  Transmission Date: 20221027
  Serious: Yes (Life-Threatening)
  Sender: FDA-Public Use
  Company Number: None

PATIENT
  Age: 38 Year
  Sex: Female

DRUGS (2)
  1. VENLAFAXINE [Suspect]
     Active Substance: VENLAFAXINE HYDROCHLORIDE
     Indication: Product used for unknown indication
  2. UNSPECIFIED INGREDIENT [Suspect]
     Active Substance: UNSPECIFIED INGREDIENT

REACTIONS (25)
  - Suicidal ideation [None]
  - Feeling of despair [None]
  - Agoraphobia [None]
  - Poor personal hygiene [None]
  - Paranoia [None]
  - Alcohol abuse [None]
  - Insomnia [None]
  - Abnormal dreams [None]
  - Hypoaesthesia [None]
  - Emotional distress [None]
  - Apathy [None]
  - Weight increased [None]
  - Depression [None]
  - Anxiety [None]
  - Hepatotoxicity [None]
  - Hypertension [None]
  - Nightmare [None]
  - Nausea [None]
  - Amnesia [None]
  - Dependence [None]
  - Impulsive behaviour [None]
  - Nervous system disorder [None]
  - Metabolic disorder [None]
  - Mental disorder [None]
  - Feeling abnormal [None]

NARRATIVE: CASE EVENT DATE: 20220701
